FAERS Safety Report 12412761 (Version 1)
Quarter: 2016Q2

REPORT INFORMATION
  Report Type: Spontaneous
  Country: US (occurrence: US)
  Receive Date: 20160527
  Receipt Date: 20160527
  Transmission Date: 20160815
  Serious: No
  Sender: FDA-Public Use
  Company Number: US-PFIZER INC-2016258065

PATIENT
  Age: 6 Year
  Sex: Male

DRUGS (1)
  1. ALPRAZOLAM. [Suspect]
     Active Substance: ALPRAZOLAM
     Indication: SLEEP DISORDER
     Dosage: UNK

REACTIONS (5)
  - Rash [Recovered/Resolved]
  - Dry mouth [Recovered/Resolved]
  - Product use issue [Unknown]
  - Drug ineffective [Unknown]
  - Thirst [Recovered/Resolved]
